FAERS Safety Report 12228994 (Version 2)
Quarter: 2016Q3

REPORT INFORMATION
  Report Type: Spontaneous
  Country: US (occurrence: US)
  Receive Date: 20160401
  Receipt Date: 20160912
  Transmission Date: 20161109
  Serious: Yes (Other)
  Sender: FDA-Public Use
  Company Number: US-JNJFOC-20160301212

PATIENT
  Age: 62 Year
  Sex: Male

DRUGS (2)
  1. XARELTO [Suspect]
     Active Substance: RIVAROXABAN
     Indication: DEEP VEIN THROMBOSIS
     Route: 048
  2. XARELTO [Suspect]
     Active Substance: RIVAROXABAN
     Indication: DEEP VEIN THROMBOSIS
     Dosage: 10-20 MG APPROXIMATELY,??EXACT DOSAGE UNKNOWN
     Route: 048
     Dates: start: 20130318, end: 20150327

REACTIONS (3)
  - Internal haemorrhage [Unknown]
  - Haematochezia [Unknown]
  - Haematuria [Unknown]

NARRATIVE: CASE EVENT DATE: 201301
